FAERS Safety Report 15957609 (Version 1)
Quarter: 2019Q1

REPORT INFORMATION
  Report Type: Spontaneous
  Country: US (occurrence: US)
  Receive Date: 20190213
  Receipt Date: 20190213
  Transmission Date: 20190417
  Serious: No
  Sender: FDA-Public Use
  Company Number: US-SA-2019SA039072

PATIENT

DRUGS (4)
  1. HUMIRA [Suspect]
     Active Substance: ADALIMUMAB
  2. METHOTREXATE. [Suspect]
     Active Substance: METHOTREXATE
  3. ARAVA [Suspect]
     Active Substance: LEFLUNOMIDE
  4. PLAQUENIL [Suspect]
     Active Substance: HYDROXYCHLOROQUINE SULFATE

REACTIONS (2)
  - Diarrhoea [Unknown]
  - Drug ineffective [Unknown]
